FAERS Safety Report 7699332-3 (Version None)
Quarter: 2011Q3

REPORT INFORMATION
  Report Type: 
  Country: None (occurrence: None)
  Receive Date: 20110819
  Receipt Date: 20110810
  Transmission Date: 20111222
  Serious: Yes (Hospitalization)
  Sender: FDA-Public Use
  Company Number: FR-ASTRAZENECA-2011SE48275

PATIENT
  Age: 37 Year
  Sex: Male

DRUGS (7)
  1. ENALAPRIL MALEATE [Concomitant]
     Route: 048
  2. IRBESARTAN AND HYDROCHLOROTHIAZIDE [Concomitant]
     Route: 048
  3. ADIPRA [Concomitant]
     Route: 048
  4. LANTUS [Concomitant]
     Indication: TYPE 1 DIABETES MELLITUS
     Route: 058
  5. CRESTOR [Suspect]
     Route: 048
     Dates: start: 20101101, end: 20110419
  6. PANTOPRAZOLE SODIUM [Concomitant]
     Route: 048
  7. PLAVIX [Concomitant]
     Route: 048

REACTIONS (2)
  - MYOSCLEROSIS [None]
  - RHABDOMYOLYSIS [None]
